FAERS Safety Report 8707636 (Version 2)
Quarter: 2013Q4

REPORT INFORMATION
  Report Type: Spontaneous
  Country: US (occurrence: US)
  Receive Date: 20120805
  Receipt Date: 20131105
  Transmission Date: 20140711
  Serious: Yes (Hospitalization, Other)
  Sender: FDA-Public Use
  Company Number: US-009507513-1207USA012365

PATIENT
  Age: 81 Year
  Sex: Female

DRUGS (20)
  1. PRINIVIL [Suspect]
     Route: 048
  2. ATENOLOL [Suspect]
     Route: 048
  3. SYMBICORT [Suspect]
     Dosage: 2 DF, BID
     Route: 055
  4. DEXILANT [Concomitant]
     Route: 048
  5. FENOFIBRATE [Concomitant]
     Route: 048
  6. CODEINE PHOSPHATE (+) GUAIFENESIN (+) PSEUDOEPHEDRINE HYDROCHLORIDE [Concomitant]
     Dosage: 5 ML, TID
     Route: 048
  7. CALCIUM (UNSPECIFIED) [Concomitant]
     Route: 048
  8. CHOLECALCIFEROL [Concomitant]
     Route: 048
  9. ACETAMINOPHEN [Concomitant]
     Route: 048
  10. OMEGA-3 MARINE TRIGLYCERIDES [Concomitant]
     Route: 048
  11. LOPERAMIDE HYDROCHLORIDE [Concomitant]
     Route: 048
  12. ASPIRIN [Concomitant]
     Route: 048
  13. DIPHENHYDRAMINE HYDROCHLORIDE [Concomitant]
     Route: 048
  14. LEVALBUTEROL [Concomitant]
     Dosage: 0.63MG/3ML, EVERY 3 HOURS, PRN
  15. LEVALBUTEROL [Concomitant]
     Dosage: UNK
  16. SERTRALINE HYDROCHLORIDE [Concomitant]
     Route: 048
  17. LEVOTHYROXINE SODIUM [Concomitant]
     Route: 048
  18. ZETIA [Concomitant]
     Route: 048
  19. PLAVIX [Concomitant]
     Route: 048
  20. VITAMIN B (UNSPECIFIED) [Concomitant]

REACTIONS (19)
  - Hyperlipidaemia [Unknown]
  - Hypothyroidism [Unknown]
  - Gastrooesophageal reflux disease [Unknown]
  - Cystocele [Unknown]
  - Spinal osteoarthritis [Unknown]
  - Depression [Unknown]
  - Coronary artery disease [Unknown]
  - Pelvic pain [Unknown]
  - Diverticulum [Unknown]
  - Rhinitis allergic [Unknown]
  - Bronchitis chronic [Unknown]
  - Chronic obstructive pulmonary disease [Unknown]
  - Angina pectoris [Unknown]
  - Essential hypertension [Unknown]
  - Arthropathy [Unknown]
  - Circumstance or information capable of leading to medication error [Unknown]
  - Bronchopneumonia [Unknown]
  - Vitamin D deficiency [Unknown]
  - Cholelithiasis [Unknown]
